FAERS Safety Report 4989476-9 (Version None)
Quarter: 2006Q2

REPORT INFORMATION
  Report Type: 
  Country: None (occurrence: None)
  Receive Date: 20060425
  Receipt Date: 20060417
  Transmission Date: 20061013
  Serious: Yes (Death)
  Sender: FDA-Public Use
  Company Number: 2006US-02015

PATIENT
  Age: 21 Month
  Sex: Female

DRUGS (8)
  1. ISOTRETINOIN [Suspect]
     Dosage: SEE IMAGE
     Route: 048
     Dates: start: 20060216, end: 20060302
  2. ISOTRETINOIN [Suspect]
     Dosage: SEE IMAGE
     Route: 048
     Dates: start: 20060216, end: 20060302
  3. ISOTRETINOIN [Suspect]
     Dosage: SEE IMAGE
     Route: 048
     Dates: start: 20060316, end: 20060330
  4. ISOTRETINOIN [Suspect]
     Dosage: SEE IMAGE
     Route: 048
     Dates: start: 20060316, end: 20060330
  5. ISOTRETINOIN [Suspect]
     Dosage: SEE IMAGE
     Route: 048
     Dates: start: 20060413, end: 20060416
  6. ISOTRETINOIN [Suspect]
     Dosage: SEE IMAGE
     Route: 048
     Dates: start: 20060413, end: 20060416
  7. COREG [Concomitant]
  8. CAPTOPRIL [Concomitant]

REACTIONS (1)
  - CEREBRAL HAEMORRHAGE [None]
